FAERS Safety Report 11447928 (Version 1)
Quarter: 2015Q3

REPORT INFORMATION
  Report Type: Spontaneous
  Country: US (occurrence: US)
  Receive Date: 20150831
  Receipt Date: 20150831
  Transmission Date: 20151125
  Serious: No
  Sender: FDA-Public Use
  Company Number: US-ELI_LILLY_AND_COMPANY-US200905000434

PATIENT
  Sex: Female

DRUGS (4)
  1. CYMBALTA [Suspect]
     Active Substance: DULOXETINE HYDROCHLORIDE
     Dosage: 30 MG, EACH EVENING
     Route: 048
     Dates: start: 20090323
  2. CYMBALTA [Suspect]
     Active Substance: DULOXETINE HYDROCHLORIDE
     Dosage: 30 MG, 2/D
     Route: 048
     Dates: start: 20090310
  3. CYMBALTA [Suspect]
     Active Substance: DULOXETINE HYDROCHLORIDE
     Indication: PANIC ATTACK
     Dosage: 30 MG, UNK
     Route: 048
     Dates: start: 20090210, end: 200904
  4. CLONOPIN [Concomitant]
     Active Substance: CLONAZEPAM
     Dosage: 0.5 MG, 2/D

REACTIONS (8)
  - Nervousness [Unknown]
  - Burning sensation [Unknown]
  - Crying [Unknown]
  - Rash [Recovering/Resolving]
  - Feeling abnormal [Unknown]
  - Urticaria [Unknown]
  - Sleep disorder [Unknown]
  - Panic attack [Unknown]

NARRATIVE: CASE EVENT DATE: 200903
